FAERS Safety Report 6297482-X (Version None)
Quarter: 2009Q3

REPORT INFORMATION
  Report Type: 
  Country: None (occurrence: None)
  Receive Date: 20090804
  Receipt Date: 20090804
  Transmission Date: 20100115
  Serious: Yes (Hospitalization)
  Sender: FDA-Public Use
  Company Number: None

PATIENT
  Sex: Male
  Weight: 86.8 kg

DRUGS (3)
  1. XELODA [Suspect]
     Dosage: 6000 MG
  2. CAMPTOSAR [Suspect]
     Dosage: 308 MG
  3. ELOXATIN [Suspect]
     Dosage: 174 MG

REACTIONS (5)
  - DECREASED APPETITE [None]
  - DEHYDRATION [None]
  - HYPOTENSION [None]
  - NAUSEA [None]
  - WEIGHT DECREASED [None]
